FAERS Safety Report 5776483-1 (Version None)
Quarter: 2008Q2

REPORT INFORMATION
  Report Type: 
  Country: None (occurrence: None)
  Receive Date: 20080617
  Receipt Date: 20080617
  Transmission Date: 20081010
  Serious: Yes (Life-Threatening, Hospitalization, Other)
  Sender: FDA-Public Use
  Company Number: None

PATIENT
  Age: 76 Year
  Sex: Female

DRUGS (1)
  1. DIGOXIN [Suspect]
     Indication: ATRIAL FIBRILLATION
     Dosage: .25 MG 2/DAY THEN 1/DAY
     Dates: start: 20080421, end: 20080518

REACTIONS (13)
  - ANXIETY [None]
  - ASTHENIA [None]
  - CARDIAC FAILURE [None]
  - COLOUR BLINDNESS [None]
  - DELIRIUM [None]
  - DIARRHOEA [None]
  - HAEMORRHAGE [None]
  - HALLUCINATION [None]
  - HEADACHE [None]
  - MENTAL IMPAIRMENT [None]
  - RENAL FAILURE [None]
  - THERAPEUTIC AGENT TOXICITY [None]
  - VISION BLURRED [None]
